FAERS Safety Report 4643308-7 (Version None)
Quarter: 2005Q2

REPORT INFORMATION
  Report Type: 
  Country: None (occurrence: None)
  Receive Date: 20050422
  Receipt Date: 20050408
  Transmission Date: 20051028
  Serious: Yes (Other)
  Sender: FDA-Public Use
  Company Number: 2005059416

PATIENT
  Age: 68 Year
  Sex: Male
  Weight: 127.0072 kg

DRUGS (4)
  1. BEXTRA [Suspect]
     Indication: ARTHRALGIA
     Dosage: 20 MG (20 MG, 1 IN 1 D) ORAL
     Route: 048
     Dates: start: 20031101
  2. PREDNISONE [Concomitant]
  3. ACETYL SALICYLIC ACID USP BAT [Concomitant]
  4. CLOPIDOGREL BISULFATE [Concomitant]

REACTIONS (6)
  - GASTRIC DISORDER [None]
  - IDIOPATHIC THROMBOCYTOPENIC PURPURA [None]
  - INSOMNIA [None]
  - SKIN ATROPHY [None]
  - SKIN EXFOLIATION [None]
  - SKIN LACERATION [None]
